FAERS Safety Report 5598350-9 (Version None)
Quarter: 2008Q1

REPORT INFORMATION
  Report Type: 
  Country: None (occurrence: None)
  Receive Date: 20080122
  Receipt Date: 20080111
  Transmission Date: 20080703
  Serious: Yes (Hospitalization)
  Sender: FDA-Public Use
  Company Number: FR-AVENTIS-200810139FR

PATIENT
  Age: 52 Year
  Sex: Male

DRUGS (16)
  1. FLAGYL [Suspect]
     Indication: PSEUDOMEMBRANOUS COLITIS
     Route: 048
     Dates: start: 20070927, end: 20071008
  2. INIPOMP                            /01263201/ [Suspect]
     Route: 048
     Dates: start: 20070927
  3. CRESTOR [Concomitant]
     Route: 048
  4. CONTRAMAL [Concomitant]
     Indication: PAIN
     Route: 042
  5. LEVOTHYROX [Concomitant]
     Route: 048
  6. PLAVIX [Concomitant]
  7. ATENOLOL [Concomitant]
  8. COVERSYL                           /00790701/ [Concomitant]
  9. DEROXAT [Concomitant]
  10. IMOVANE [Concomitant]
  11. OMACOR                             /00931501/ [Concomitant]
  12. ACUPAN [Concomitant]
  13. DAFALGAN                           /00020001/ [Concomitant]
  14. CLONAZEPAM [Concomitant]
  15. LOVENOX [Concomitant]
  16. LASILIX                            /00032601/ [Concomitant]

REACTIONS (1)
  - LEUKOPENIA [None]
